FAERS Safety Report 6125175-8 (Version None)
Quarter: 2009Q1

REPORT INFORMATION
  Report Type: 
  Country: None (occurrence: None)
  Receive Date: 20090316
  Receipt Date: 20090311
  Transmission Date: 20090719
  Serious: Yes (Hospitalization, Disabling)
  Sender: FDA-Public Use
  Company Number: 200914545

PATIENT
  Age: 64 Year
  Sex: Female
  Weight: 79.3795 kg

DRUGS (30)
  1. VIVAGLOBIN [Suspect]
     Indication: IMMUNODEFICIENCY COMMON VARIABLE
     Dosage: 46 ML Q1W SC
     Route: 058
     Dates: start: 20081027, end: 20090112
  2. VIVAGLOBIN [Suspect]
  3. VIVAGLOBIN [Suspect]
  4. VIVAGLOBIN [Suspect]
  5. VIVAGLOBIN [Suspect]
  6. VIVAGLOBIN [Suspect]
  7. VIVAGLOBIN [Suspect]
  8. VIVAGLOBIN [Suspect]
  9. PREVACID [Concomitant]
  10. COZAAR [Concomitant]
  11. ASPIRIN [Concomitant]
  12. METOPROLOL TARTRATE [Concomitant]
  13. XYZAL [Concomitant]
  14. ADVAIR HFA [Concomitant]
  15. ASMANEX TWISTHALER [Concomitant]
  16. SINGULAIR [Concomitant]
  17. ZANTAC [Concomitant]
  18. DICYCLOMINE [Concomitant]
  19. MYLANTA /00108001/ [Concomitant]
  20. GAS X [Concomitant]
  21. TUMS [Concomitant]
  22. TYLENOL [Concomitant]
  23. NASONEX [Concomitant]
  24. ASTELIN /00085801/ [Concomitant]
  25. IMODIUM /00384302/ [Concomitant]
  26. CARISOPRODOL [Concomitant]
  27. TRAMACOL [Concomitant]
  28. MELOXICAM [Concomitant]
  29. XANAX [Concomitant]
  30. ASTELIN [Concomitant]

REACTIONS (6)
  - AGITATION [None]
  - DRUG INEFFECTIVE [None]
  - INFUSION RELATED REACTION [None]
  - INFUSION SITE PRURITUS [None]
  - INJECTION SITE ERYTHEMA [None]
  - NEUROLOGICAL SYMPTOM [None]
